FAERS Safety Report 14982243 (Version 2)
Quarter: 2018Q3

REPORT INFORMATION
  Report Type: Spontaneous
  Country: GB (occurrence: GB)
  Receive Date: 20180607
  Receipt Date: 20180807
  Transmission Date: 20181010
  Serious: Yes (Other)
  Sender: FDA-Public Use
  Company Number: GB-AMGEN-GBRSP2018045389

PATIENT
  Age: 35 Year
  Sex: Female

DRUGS (1)
  1. ENBREL [Suspect]
     Active Substance: ETANERCEPT
     Indication: PRODUCT USED FOR UNKNOWN INDICATION
     Dosage: 50 MG, FORTNIGHTLY
     Route: 058

REACTIONS (4)
  - Deafness transitory [Recovered/Resolved]
  - Product use issue [Unknown]
  - Cough [Recovered/Resolved]
  - Nasal congestion [Unknown]
